FAERS Safety Report 5322312-X (Version None)
Quarter: 2007Q2

REPORT INFORMATION
  Report Type: 
  Country: None (occurrence: None)
  Receive Date: 20070511
  Receipt Date: 20070508
  Transmission Date: 20071010
  Serious: Yes (Death, Hospitalization)
  Sender: FDA-Public Use
  Company Number: D0053210A

PATIENT
  Age: 56 Year
  Sex: Male

DRUGS (2)
  1. AVANDIA [Suspect]
     Dosage: 8MG UNKNOWN
     Route: 048
     Dates: end: 20070119
  2. INSULIN [Suspect]
     Route: 065
     Dates: start: 20070119

REACTIONS (5)
  - ABDOMINAL PAIN UPPER [None]
  - ASCITES [None]
  - METASTASES TO LIVER [None]
  - PANCREATIC CARCINOMA [None]
  - RENAL FAILURE [None]
